FAERS Safety Report 12831172 (Version 1)
Quarter: 2016Q4

REPORT INFORMATION
  Report Type: Report from Study
  Country: CH (occurrence: CH)
  Receive Date: 20161008
  Receipt Date: 20161008
  Transmission Date: 20170207
  Serious: Yes (Death, Other)
  Sender: FDA-Public Use
  Company Number: CH-ASTRAZENECA-2016SE85020

PATIENT
  Sex: Female
  Weight: 57.8 kg

DRUGS (12)
  1. PANTOPRAZOL [Concomitant]
     Active Substance: PANTOPRAZOLE SODIUM
     Indication: GASTRIC DISORDER
     Route: 048
     Dates: start: 20160614, end: 20160807
  2. OXYCODONNALOXON [Concomitant]
     Indication: PAIN
     Dosage: 45 MG DAILY
     Route: 048
     Dates: start: 2015
  3. OXYCODON LIQU [Concomitant]
     Indication: PAIN
     Route: 048
     Dates: start: 2015
  4. NOVALGIN KEPPRA [Concomitant]
  5. TEMESTA [Concomitant]
     Active Substance: LORAZEPAM
  6. TAGRISSO [Suspect]
     Active Substance: OSIMERTINIB
     Indication: NON-SMALL CELL LUNG CANCER METASTATIC
     Route: 048
     Dates: start: 20160717, end: 20160804
  7. OXYCONTIN TARGIN RETARD [Concomitant]
  8. PANTOZOL [Concomitant]
     Active Substance: PANTOPRAZOLE SODIUM
  9. NOVAMINSULFON [Concomitant]
     Active Substance: METAMIZOLE
     Indication: PAIN
     Dosage: 3000 MG DAILY
     Route: 048
     Dates: start: 2015
  10. TAGRISSO [Suspect]
     Active Substance: OSIMERTINIB
     Indication: NON-SMALL CELL LUNG CANCER METASTATIC
     Route: 048
     Dates: start: 20160614
  11. LORAZEPAM. [Concomitant]
     Active Substance: LORAZEPAM
     Indication: SLEEP DISORDER
     Route: 060
     Dates: start: 201601, end: 20160807
  12. LEVETIRAZETAM [Concomitant]
     Indication: SEIZURE
     Route: 048
     Dates: start: 20160520

REACTIONS (3)
  - Thrombocytopenia [Not Recovered/Not Resolved]
  - Malignant neoplasm progression [Fatal]
  - Fatigue [Not Recovered/Not Resolved]
